FAERS Safety Report 6871017-2 (Version None)
Quarter: 2010Q3

REPORT INFORMATION
  Report Type: 
  Country: None (occurrence: None)
  Receive Date: 20100723
  Receipt Date: 20100709
  Transmission Date: 20110219
  Serious: No
  Sender: FDA-Public Use
  Company Number: US-B.I. PHARMACEUTICALS,INC./RIDGEFIELD-2010-BP-07950BP

PATIENT
  Sex: Male

DRUGS (5)
  1. ZANTAC 150 [Suspect]
     Indication: DYSPEPSIA
     Dosage: 150 MG
     Route: 048
     Dates: start: 20100622
  2. PRILOSEC [Suspect]
     Indication: DYSPEPSIA
  3. PRILOSEC [Suspect]
     Indication: HIATUS HERNIA
  4. FISH OIL [Concomitant]
     Indication: BLOOD CHOLESTEROL INCREASED
  5. MULTIVIT [Concomitant]
     Indication: VITAMIN SUPPLEMENTATION

REACTIONS (5)
  - DRUG INEFFECTIVE [None]
  - DYSPEPSIA [None]
  - EATING DISORDER [None]
  - ERUCTATION [None]
  - PAIN IN EXTREMITY [None]
